FAERS Safety Report 21915794 (Version 2)
Quarter: 2023Q1

REPORT INFORMATION
  Report Type: Spontaneous
  Country: US (occurrence: US)
  Receive Date: 20230126
  Receipt Date: 20230310
  Transmission Date: 20230417
  Serious: No
  Sender: FDA-Public Use
  Company Number: US-PFIZER INC-PV202300015677

PATIENT
  Age: 74 Year
  Sex: Female

DRUGS (2)
  1. XALKORI [Suspect]
     Active Substance: CRIZOTINIB
     Indication: Lung neoplasm malignant
     Dosage: UNK
  2. LORBRENA [Concomitant]
     Active Substance: LORLATINIB
     Indication: Lung neoplasm malignant
     Dosage: UNK

REACTIONS (1)
  - Diarrhoea [Unknown]
